FAERS Safety Report 24938437 (Version 1)
Quarter: 2025Q1

REPORT INFORMATION
  Report Type: Spontaneous
  Country: US (occurrence: US)
  Receive Date: 20250206
  Receipt Date: 20250206
  Transmission Date: 20250408
  Serious: No
  Sender: SANOFI AVENTIS
  Company Number: US-SA-2025SA035953

PATIENT
  Age: 54 Year
  Sex: Female
  Weight: 64.55 kg

DRUGS (12)
  1. FABRAZYME [Suspect]
     Active Substance: AGALSIDASE BETA
     Indication: Fabry^s disease
     Dosage: 65MGQOW
     Route: 042
     Dates: start: 20240913
  2. ACETAMINOPHEN [Concomitant]
     Active Substance: ACETAMINOPHEN
  3. EPINEPHRINE [Concomitant]
     Active Substance: EPINEPHRINE
  4. SODIUM CHLORIDE [Concomitant]
     Active Substance: SODIUM CHLORIDE
  5. WATER FOR INJECTION [Concomitant]
     Active Substance: WATER
  6. ADDERALL [Concomitant]
     Active Substance: AMPHETAMINE ASPARTATE\AMPHETAMINE SULFATE\DEXTROAMPHETAMINE SACCHARATE\DEXTROAMPHETAMINE SULFATE
  7. SODIUM CHLORIDE [Concomitant]
     Active Substance: SODIUM CHLORIDE
  8. ATORVASTATIN CALCIUM [Concomitant]
     Active Substance: ATORVASTATIN CALCIUM
  9. NURTEC ODT [Concomitant]
     Active Substance: RIMEGEPANT SULFATE
  10. ZONISAMIDE [Concomitant]
     Active Substance: ZONISAMIDE
  11. DIPHENHYDRAMINE [Concomitant]
     Active Substance: DIPHENHYDRAMINE
  12. ORPHENADRINE CITRATE [Concomitant]
     Active Substance: ORPHENADRINE CITRATE

REACTIONS (1)
  - Malaise [Unknown]
